FAERS Safety Report 7935719-9 (Version None)
Quarter: 2011Q4

REPORT INFORMATION
  Report Type: 
  Country: None (occurrence: None)
  Receive Date: 20111123
  Receipt Date: 20111114
  Transmission Date: 20120403
  Serious: Yes (Hospitalization)
  Sender: FDA-Public Use
  Company Number: TR-JNJFOC-20111105917

PATIENT
  Sex: Female

DRUGS (3)
  1. REMICADE [Suspect]
     Indication: ANKYLOSING SPONDYLITIS
     Dosage: DOSE: 300 (UNITS UNSPECIFIED)
     Route: 042
     Dates: start: 20110601
  2. REMICADE [Suspect]
     Route: 042
     Dates: start: 20110901
  3. REMICADE [Suspect]
     Route: 042
     Dates: start: 20111111

REACTIONS (4)
  - APNOEA [None]
  - PERFORMANCE STATUS DECREASED [None]
  - HEADACHE [None]
  - TREMOR [None]
